FAERS Safety Report 25608332 (Version 2)
Quarter: 2025Q3

REPORT INFORMATION
  Report Type: Spontaneous
  Country: US (occurrence: US)
  Receive Date: 20250726
  Receipt Date: 20250729
  Transmission Date: 20251021
  Serious: Yes (Hospitalization, Other)
  Sender: BRISTOL-MYERS SQUIBB COMPANY
  Company Number: US-BRISTOL-MYERS SQUIBB COMPANY-2025-102244

PATIENT
  Age: 40 Year
  Sex: Male

DRUGS (4)
  1. NELVUTAMIG [Suspect]
     Active Substance: NELVUTAMIG
     Indication: Clear cell renal cell carcinoma
  2. NIVOLUMAB [Suspect]
     Active Substance: NIVOLUMAB
     Indication: Clear cell renal cell carcinoma
  3. DEXAMETHASONE [Suspect]
     Active Substance: DEXAMETHASONE
     Indication: Clear cell renal cell carcinoma
  4. DEXAMETHASONE [Suspect]
     Active Substance: DEXAMETHASONE
     Indication: Metastases to central nervous system

REACTIONS (3)
  - Hepatitis B reactivation [Recovering/Resolving]
  - Cytomegalovirus infection [Unknown]
  - Epstein-Barr virus infection [Unknown]
